FAERS Safety Report 12989534 (Version 2)
Quarter: 2016Q4

REPORT INFORMATION
  Report Type: Spontaneous
  Country: US (occurrence: US)
  Receive Date: 20161201
  Receipt Date: 20161219
  Transmission Date: 20170207
  Serious: Yes (Other)
  Sender: FDA-Public Use
  Company Number: PHEH2016US031211

PATIENT
  Sex: Female
  Weight: 77.98 kg

DRUGS (3)
  1. GILENYA [Suspect]
     Active Substance: FINGOLIMOD HYDROCHLORIDE
     Indication: MULTIPLE SCLEROSIS
     Dosage: 0.5 MG, QD
     Route: 048
     Dates: start: 201604, end: 201609
  2. SYNTHROID [Concomitant]
     Active Substance: LEVOTHYROXINE SODIUM
     Indication: PRODUCT USED FOR UNKNOWN INDICATION
     Dosage: 88 UG, QD (BEFORE BREAKFAST)
     Route: 048
  3. VITAMIN E [Concomitant]
     Active Substance: .ALPHA.-TOCOPHEROL
     Indication: PRODUCT USED FOR UNKNOWN INDICATION
     Dosage: 400 U, QD
     Route: 048

REACTIONS (29)
  - Restless legs syndrome [Unknown]
  - Coordination abnormal [Unknown]
  - Fatigue [Unknown]
  - Insomnia [Unknown]
  - Dysuria [Unknown]
  - Muscular weakness [Unknown]
  - Blood glucose increased [Unknown]
  - Hypoaesthesia [Unknown]
  - Gait disturbance [Unknown]
  - Depression [Unknown]
  - Feeling abnormal [Unknown]
  - Dysphagia [Unknown]
  - Joint swelling [Unknown]
  - Romberg test positive [Unknown]
  - Hyperaesthesia [Unknown]
  - Hypersensitivity [Unknown]
  - Macular oedema [Unknown]
  - Constipation [Unknown]
  - Anxiety [Unknown]
  - Musculoskeletal discomfort [Unknown]
  - Micturition urgency [Unknown]
  - Musculoskeletal stiffness [Unknown]
  - Balance disorder [Unknown]
  - Palpitations [Unknown]
  - Urinary incontinence [Unknown]
  - Arthralgia [Unknown]
  - Paraesthesia [Unknown]
  - Temperature intolerance [Unknown]
  - Dysaesthesia [Unknown]
